FAERS Safety Report 17216515 (Version 1)
Quarter: 2019Q4

REPORT INFORMATION
  Report Type: Spontaneous
  Country: DE (occurrence: DE)
  Receive Date: 20191230
  Receipt Date: 20191230
  Transmission Date: 20200122
  Serious: Yes (Other)
  Sender: FDA-Public Use
  Company Number: DE-AUROBINDO-AUR-APL-2019-107873

PATIENT
  Age: 62 Year
  Sex: Female

DRUGS (8)
  1. BEVACIZUMAB. [Concomitant]
     Active Substance: BEVACIZUMAB
     Dosage: UNK
     Route: 065
     Dates: start: 201308, end: 201403
  2. SODIUM IBANDRONATE [Suspect]
     Active Substance: IBANDRONATE SODIUM
     Dosage: UNK
     Route: 065
     Dates: start: 201308, end: 201403
  3. SODIUM IBANDRONATE [Suspect]
     Active Substance: IBANDRONATE SODIUM
     Indication: BREAST CANCER
     Dosage: UNK, Q4W
     Route: 065
     Dates: start: 201103, end: 201106
  4. PACLITAXEL. [Suspect]
     Active Substance: PACLITAXEL
     Indication: BREAST CANCER
     Dosage: UNK, (13X, WEEKLY)
     Route: 065
     Dates: start: 201103, end: 201106
  5. BEVACIZUMAB. [Concomitant]
     Active Substance: BEVACIZUMAB
     Dosage: UNK, Q3W
     Route: 065
     Dates: start: 201107, end: 201308
  6. LETROZOLE. [Suspect]
     Active Substance: LETROZOLE
     Indication: BREAST CANCER
     Dosage: UNK
     Route: 065
     Dates: start: 201308, end: 201403
  7. SODIUM IBANDRONATE [Suspect]
     Active Substance: IBANDRONATE SODIUM
     Dosage: UNK, Q3W
     Route: 065
     Dates: start: 201107, end: 201308
  8. BEVACIZUMAB. [Concomitant]
     Active Substance: BEVACIZUMAB
     Indication: BREAST CANCER
     Dosage: UNK, Q3W
     Route: 065
     Dates: start: 201103, end: 201106

REACTIONS (3)
  - Breast cancer [Unknown]
  - Metastases to liver [Unknown]
  - Malignant neoplasm progression [Unknown]

NARRATIVE: CASE EVENT DATE: 201403
